FAERS Safety Report 7204821-1 (Version None)
Quarter: 2010Q4

REPORT INFORMATION
  Report Type: 
  Country: None (occurrence: None)
  Receive Date: 20101230
  Receipt Date: 20101220
  Transmission Date: 20110411
  Serious: Yes (Congenital Anomaly)
  Sender: FDA-Public Use
  Company Number: BE-WATSON-2010-16567

PATIENT
  Sex: Male
  Weight: 0.28 kg

DRUGS (3)
  1. FLUOROURACIL [Suspect]
     Indication: CHEMOTHERAPY
     Dosage: 2 CYCLES
     Route: 064
  2. EPIRUBICIN HYDROCHLORIDE [Suspect]
     Indication: CHEMOTHERAPY
     Dosage: 2 CYCLES
     Route: 064
  3. CYCLOPHOSPHAMIDE [Suspect]
     Indication: CHEMOTHERAPY
     Dosage: 2 CYCLES
     Route: 064

REACTIONS (6)
  - CLINODACTYLY [None]
  - FOOT DEFORMITY [None]
  - MACRODACTYLY [None]
  - MICROGNATHIA [None]
  - PHALANGEAL AGENESIS [None]
  - SYNDACTYLY [None]
